FAERS Safety Report 6059850-0 (Version None)
Quarter: 2009Q1

REPORT INFORMATION
  Report Type: 
  Country: None (occurrence: None)
  Receive Date: 20090130
  Receipt Date: 20090127
  Transmission Date: 20090719
  Serious: Yes (Death)
  Sender: FDA-Public Use
  Company Number: US-CELGENEUS-163-20785-08110152

PATIENT
  Sex: Male

DRUGS (2)
  1. THALOMID [Suspect]
     Indication: MULTIPLE MYELOMA
     Route: 048
     Dates: start: 20050622, end: 20080101
  2. THALOMID [Suspect]
     Route: 048
     Dates: start: 20050511, end: 20050501

REACTIONS (1)
  - CARDIAC DISORDER [None]
